FAERS Safety Report 16090040 (Version 1)
Quarter: 2019Q2

REPORT INFORMATION
  Report Type: Spontaneous
  Country: US (occurrence: US)
  Receive Date: 20190319
  Receipt Date: 20190319
  Transmission Date: 20190711
  Serious: No
  Sender: FDA-Public Use
  Company Number: None

PATIENT
  Age: 78 Year
  Sex: Female
  Weight: 96.75 kg

DRUGS (8)
  1. PRAVASTATIN. [Concomitant]
     Active Substance: PRAVASTATIN
  2. ASPIRIN. [Concomitant]
     Active Substance: ASPIRIN
  3. FEMARA [Concomitant]
     Active Substance: LETROZOLE
  4. LOSARTAN. [Concomitant]
     Active Substance: LOSARTAN
  5. POTASSIUM CHLORIDE. [Concomitant]
     Active Substance: POTASSIUM CHLORIDE
  6. KISQALI [Suspect]
     Active Substance: RIBOCICLIB
     Indication: MALIGNANT PLEURAL EFFUSION
     Route: 048
     Dates: start: 20190111, end: 20190307
  7. LASIX [Concomitant]
     Active Substance: FUROSEMIDE
  8. METOPROLOL SUCCINATE. [Concomitant]
     Active Substance: METOPROLOL SUCCINATE

REACTIONS (2)
  - Therapy cessation [None]
  - Neutropenia [None]

NARRATIVE: CASE EVENT DATE: 20190307
